FAERS Safety Report 23305239 (Version 1)
Quarter: 2023Q4

REPORT INFORMATION
  Report Type: Spontaneous
  Country: US (occurrence: US)
  Receive Date: 20231218
  Receipt Date: 20231218
  Transmission Date: 20240109
  Serious: Yes (Other)
  Sender: FDA-Public Use
  Company Number: US-BEH-2023166427

PATIENT
  Age: 5 Year
  Sex: Male

DRUGS (8)
  1. IDELVION [Suspect]
     Active Substance: COAGULATION FACTOR IX RECOMBINANT HUMAN
     Indication: Factor IX deficiency
     Dosage: 1200-1440 UNITS, QW
     Route: 042
     Dates: start: 202303
  2. IDELVION [Suspect]
     Active Substance: COAGULATION FACTOR IX RECOMBINANT HUMAN
     Indication: Factor IX deficiency
     Dosage: 1200-1440 UNITS, QW
     Route: 042
     Dates: start: 202303
  3. IDELVION [Suspect]
     Active Substance: COAGULATION FACTOR IX RECOMBINANT HUMAN
     Indication: Mouth haemorrhage
     Dosage: 1200-1440 UNITS, PRN (FOR MINOR BLEEDS)
     Route: 042
     Dates: start: 202303
  4. IDELVION [Suspect]
     Active Substance: COAGULATION FACTOR IX RECOMBINANT HUMAN
     Indication: Mouth haemorrhage
     Dosage: 1200-1440 UNITS, PRN (FOR MINOR BLEEDS)
     Route: 042
     Dates: start: 202303
  5. IDELVION [Suspect]
     Active Substance: COAGULATION FACTOR IX RECOMBINANT HUMAN
     Dosage: 2400-2880 UNITS, PRN FOR MAJOR BLEEDS
     Route: 042
     Dates: start: 202303
  6. IDELVION [Suspect]
     Active Substance: COAGULATION FACTOR IX RECOMBINANT HUMAN
     Dosage: 2400-2880 UNITS, PRN FOR MAJOR BLEEDS
     Route: 042
     Dates: start: 202303
  7. IDELVION [Suspect]
     Active Substance: COAGULATION FACTOR IX RECOMBINANT HUMAN
     Dosage: 2 DOSAGE FORM, PRN
     Route: 065
     Dates: start: 20231130
  8. IDELVION [Suspect]
     Active Substance: COAGULATION FACTOR IX RECOMBINANT HUMAN
     Dosage: 2 DOSAGE FORM, PRN
     Route: 065
     Dates: start: 20231130

REACTIONS (1)
  - Mouth haemorrhage [Recovered/Resolved]

NARRATIVE: CASE EVENT DATE: 20231130
